FAERS Safety Report 22256061 (Version 2)
Quarter: 2023Q2

REPORT INFORMATION
  Report Type: Spontaneous
  Country: CN (occurrence: CN)
  Receive Date: 20230426
  Receipt Date: 20230428
  Transmission Date: 20230721
  Serious: Yes (Other)
  Sender: FDA-Public Use
  Company Number: CN-GLAXOSMITHKLINE-CNCH2023APC017941

PATIENT
  Age: 54 Year
  Sex: Male

DRUGS (1)
  1. VOLTAREN [Suspect]
     Active Substance: DICLOFENAC SODIUM
     Indication: Gouty arthritis
     Dosage: 50 MG, TID (ENTERIC-COATED TABLET)
     Route: 048
     Dates: start: 20230405, end: 20230410

REACTIONS (4)
  - Face oedema [Recovered/Resolved]
  - Oedema peripheral [Recovered/Resolved]
  - Oedema [Recovered/Resolved]
  - Urine output decreased [Recovering/Resolving]

NARRATIVE: CASE EVENT DATE: 20230408
